FAERS Safety Report 23981090 (Version 3)
Quarter: 2024Q3

REPORT INFORMATION
  Report Type: Spontaneous
  Country: IT (occurrence: IT)
  Receive Date: 20240617
  Receipt Date: 20240828
  Transmission Date: 20241017
  Serious: Yes (Other)
  Sender: ACCORD
  Company Number: None

PATIENT
  Age: 65 Year
  Sex: Male
  Weight: 51 kg

DRUGS (11)
  1. DAPTOMYCIN [Suspect]
     Active Substance: DAPTOMYCIN
     Indication: Endocarditis
     Dates: start: 20240510
  2. CIPROFLOXACIN [Suspect]
     Active Substance: CIPROFLOXACIN
     Indication: Product used for unknown indication
     Dates: start: 20240515
  3. METRONIDAZOLE [Suspect]
     Active Substance: METRONIDAZOLE
     Indication: Pneumonitis
     Dosage: 500 MG 3 TIMES A DAY
     Dates: start: 20240515, end: 20240520
  4. OSELTAMIVIR [Suspect]
     Active Substance: OSELTAMIVIR
     Indication: Influenza
     Dosage: 75 MG 2 TIMES PER DAY
  5. DAPTOMYCIN [Concomitant]
     Active Substance: DAPTOMYCIN
     Indication: Endocarditis
     Dates: start: 20240510
  6. PREDNISONE [Concomitant]
     Active Substance: PREDNISONE
  7. ACYCLOVIR [Concomitant]
     Active Substance: ACYCLOVIR
  8. FUROSEMIDE [Concomitant]
     Active Substance: FUROSEMIDE
  9. DULOXETINE [Concomitant]
     Active Substance: DULOXETINE
  10. PREGABALIN [Concomitant]
     Active Substance: PREGABALIN
  11. MIDODRINE [Concomitant]
     Active Substance: MIDODRINE

REACTIONS (3)
  - Leukopenia [Recovering/Resolving]
  - Neutropenia [Recovering/Resolving]
  - Lymphocytosis [Recovering/Resolving]

NARRATIVE: CASE EVENT DATE: 20240520
